FAERS Safety Report 10064642 (Version 1)
Quarter: 2014Q2

REPORT INFORMATION
  Report Type: Spontaneous
  Country: US (occurrence: None)
  Receive Date: 20140407
  Receipt Date: 20140407
  Transmission Date: 20141212
  Serious: Yes (Other)
  Sender: FDA-Public Use
  Company Number: None

PATIENT
  Age: 41 Year
  Sex: Female
  Weight: 74.84 kg

DRUGS (2)
  1. XANAX [Suspect]
     Indication: ANXIETY
     Route: 048
  2. XANAX [Suspect]
     Indication: BIPOLAR DISORDER
     Route: 048

REACTIONS (1)
  - Anxiety [None]
